FAERS Safety Report 9197464 (Version 1)
Quarter: 2013Q1

REPORT INFORMATION
  Report Type: Report from Study
  Country: US (occurrence: US)
  Receive Date: 20130328
  Receipt Date: 20130328
  Transmission Date: 20140127
  Serious: No
  Sender: FDA-Public Use
  Company Number: US-VERTEX PHARMACEUTICALS INC.-2013-004155

PATIENT
  Sex: Female

DRUGS (5)
  1. VX-950 (TELAPREVIR) [Suspect]
     Indication: HEPATITIS C
     Dosage: 750 MG, TID
     Route: 048
  2. PEGASYS [Suspect]
     Indication: HEPATITIS C
     Dosage: 180 MCG/0.5 ML
  3. RIBAVIRIN [Suspect]
     Indication: HEPATITIS C
     Dosage: 200 MG, UNK
  4. MULTIVITAMIN [Concomitant]
  5. FIBER [Concomitant]

REACTIONS (3)
  - Erythema [Unknown]
  - Decreased appetite [Unknown]
  - Pruritus [Unknown]
